FAERS Safety Report 20160529 (Version 1)
Quarter: 2021Q4

REPORT INFORMATION
  Report Type: Report from Study
  Country: US (occurrence: US)
  Receive Date: 20211208
  Receipt Date: 20211208
  Transmission Date: 20220304
  Serious: Yes (Hospitalization, Other)
  Sender: FDA-Public Use
  Company Number: US-TAKEDA-US202034330

PATIENT
  Age: 21 Year
  Sex: Male

DRUGS (1)
  1. GAMMAGARD LIQUID [Suspect]
     Active Substance: HUMAN IMMUNOGLOBULIN G
     Indication: Primary immunodeficiency syndrome
     Dosage: 10 GRAM, 1/WEEK
     Route: 058

REACTIONS (6)
  - Seizure [Unknown]
  - Spinal cord injury [Unknown]
  - Scoliosis [Unknown]
  - Procedural complication [Unknown]
  - Paralysis [Unknown]
  - Immunoglobulins increased [Unknown]

NARRATIVE: CASE EVENT DATE: 20201016
